FAERS Safety Report 26165733 (Version 1)
Quarter: 2025Q4

REPORT INFORMATION
  Report Type: Report from Study
  Country: IN (occurrence: IN)
  Receive Date: 20251216
  Receipt Date: 20251216
  Transmission Date: 20260118
  Serious: Yes (Hospitalization)
  Sender: EISAI
  Company Number: IN-Eisai-EC-2025-201893

PATIENT
  Age: 66 Year
  Sex: Female

DRUGS (1)
  1. HALAVEN [Suspect]
     Active Substance: ERIBULIN MESYLATE
     Indication: Breast cancer
     Route: 042
     Dates: start: 20250719, end: 20251004

REACTIONS (1)
  - Mouth ulceration [Recovered/Resolved]

NARRATIVE: CASE EVENT DATE: 20251001
